FAERS Safety Report 6710421-X (Version None)
Quarter: 2010Q2

REPORT INFORMATION
  Report Type: 
  Country: None (occurrence: None)
  Receive Date: 20100504
  Receipt Date: 20100423
  Transmission Date: 20101027
  Serious: No
  Sender: FDA-Public Use
  Company Number: US-B.I. PHARMACEUTICALS,INC./RIDGEFIELD-2010-BP-04782BP

PATIENT
  Sex: Male

DRUGS (6)
  1. SPIRIVA [Suspect]
     Dosage: 18 MCG
     Route: 055
     Dates: start: 20100101
  2. DILTIAZEM HCL [Concomitant]
     Indication: TACHYCARDIA
     Dosage: 120 MG
     Route: 048
     Dates: end: 20070101
  3. DIGOXIN [Concomitant]
     Indication: TACHYCARDIA
     Dosage: 0.25 MG
     Route: 048
     Dates: end: 20070101
  4. GABAPENTIN [Concomitant]
     Indication: NEUROPATHY PERIPHERAL
     Dosage: 300 MG
     Route: 048
     Dates: end: 20070101
  5. LIPITOR [Concomitant]
     Indication: BLOOD CHOLESTEROL INCREASED
     Dosage: 20 MG
     Route: 048
  6. NOVOLOG MIX 70/30 [Concomitant]
     Indication: DIABETES MELLITUS
     Route: 058
     Dates: end: 20050101

REACTIONS (3)
  - DYSPNOEA [None]
  - FATIGUE [None]
  - UPPER RESPIRATORY FUNGAL INFECTION [None]
